FAERS Safety Report 19876965 (Version 1)
Quarter: 2021Q3

REPORT INFORMATION
  Report Type: Spontaneous
  Country: DE (occurrence: DE)
  Receive Date: 20210924
  Receipt Date: 20210924
  Transmission Date: 20211014
  Serious: Yes (Hospitalization, Other)
  Sender: FDA-Public Use
  Company Number: DE-TEVA-2021-DE-1956010

PATIENT
  Age: 1 Day
  Sex: Male

DRUGS (9)
  1. PRESINOL [Concomitant]
     Active Substance: METHYLDOPA
     Indication: WITHDRAWAL HYPERTENSION
     Dosage: 1500 [MG / D (UP TO 1000, 4?6X250)] / AFTER DISCONTINUATION OF CLONIDINE: WITHDRAWAL HYPERTENSION ,
     Route: 064
     Dates: start: 20200203, end: 20200206
  2. METOPROLOL. [Concomitant]
     Active Substance: METOPROLOL
     Indication: HYPERTENSION
     Dosage: SMALLEST DOSE , ADDITIONAL INFO : 10. ? 39.5. GESTATIONAL WEEK
     Route: 064
  3. TRAMADOL. [Suspect]
     Active Substance: TRAMADOL
     Indication: DRUG ABUSE
     Dosage: 800 [MG / D (?200)] / 200 MG / D UNTIL ~ GW 20, 6TH TO 8TH MONTHS: 700 TO 800 MG / D, LAST MONTH 400
     Route: 064
  4. CLONIDINE. [Concomitant]
     Active Substance: CLONIDINE
     Indication: DRUG ABUSE
     Dosage: 3 [MG / D (UP TO 2.1)] , ADDITIONAL INFO : 0. ? 10. GESTATIONAL WEEK
     Route: 064
  5. INFLUVAC TETRA [Concomitant]
     Active Substance: INFLUENZA VIRUS VACCINE QUADRIVALENT TYPE A+B
     Indication: IMMUNISATION
     Dosage: ADDITIONAL INFO : 14.5. ? 14.5. GESTATIONAL WEEK
     Route: 064
     Dates: start: 20200402, end: 20200402
  6. TILIDINE [Concomitant]
     Active Substance: TILIDINE
     Indication: DRUG ABUSE
     Dosage: 50 MILLIGRAM DAILY; ADDITIONAL INFO : 10. ? 12. GESTATIONAL WEEK
     Route: 064
  7. TIANEURAX [Concomitant]
     Active Substance: TIANEPTINE SODIUM
     Indication: DEPRESSION
     Dosage: 7250 [MG / D (UP TO 5800, 40?50X145)] , ADDITIONAL INFO : 0. ? 7. GESTATIONAL WEEK
     Route: 064
  8. PRESINOL [Concomitant]
     Active Substance: METHYLDOPA
     Indication: HYPERTENSION
     Dosage: 250 MILLIGRAM DAILY;
     Route: 064
  9. OMEPRAZOL [Concomitant]
     Active Substance: OMEPRAZOLE
     Indication: GASTROOESOPHAGEAL REFLUX DISEASE
     Dosage: 20 MILLIGRAM DAILY; 20 [MG/D  (20?0?0) ] , ADDITIONAL INFO : 0. ? 39.5. GESTATIONAL WEEK
     Route: 064
     Dates: start: 20191221, end: 20200924

REACTIONS (6)
  - Drug withdrawal syndrome neonatal [Recovered/Resolved]
  - Reflexes abnormal [Recovered/Resolved]
  - Restlessness [Recovered/Resolved]
  - Foetal exposure during pregnancy [Unknown]
  - Crying [Recovered/Resolved]
  - Diarrhoea [Recovered/Resolved]

NARRATIVE: CASE EVENT DATE: 20191221
